FAERS Safety Report 7841880 (Version 2)
Quarter: 2012Q4

REPORT INFORMATION
  Report Type: 
  Country: GB (occurrence: GB)
  Receive Date: 20110304
  Receipt Date: 20121214
  Transmission Date: 20130627
  Serious: Yes (Other)
  Sender: FDA-Public Use
  Company Number: PHHY2011GB14519

PATIENT
  Age: 29 Year
  Sex: Female
  Weight: 64 kg

DRUGS (5)
  1. CO-CODAMOL [Suspect]
     Indication: PAIN
     Dosage: 2 DF, PRN
     Dates: start: 20090106
  2. FOLIC ACID [Suspect]
     Indication: PREGNANCY
     Dosage: 1 DF, QD
     Dates: start: 200905
  3. HYDROXOCOBALAMIN [Suspect]
     Indication: VITAMIN B12 DEFICIENCY
     Dosage: 3 DF, QMO
     Dates: start: 20091216
  4. OMEPRAZOLE [Suspect]
     Indication: PROPHYLAXIS AGAINST GASTROINTESTINAL ULCER
     Dosage: 20 mg, QD
     Dates: start: 20081016
  5. LYRICA [Suspect]
     Indication: PAIN
     Dosage: 2 DF, BID
     Dates: start: 20080815

REACTIONS (4)
  - Haemorrhage [Unknown]
  - Infection [Unknown]
  - Pelvic pain [Unknown]
  - Exposure during pregnancy [Unknown]
